FAERS Safety Report 9285297 (Version 2)
Quarter: 2013Q2

REPORT INFORMATION
  Report Type: Not Available
  Country: FR (occurrence: FR)
  Receive Date: 20130513
  Receipt Date: 20130603
  Transmission Date: 20140414
  Serious: Yes (Hospitalization)
  Sender: FDA-Public Use
  Company Number: FR-NAPPMUNDI-GBR-2013-0013871

PATIENT
  Age: 87 Year
  Sex: Female

DRUGS (18)
  1. OXYCONTIN LP 20 MG, COMPRIME PELLICULE A LIBERATION PROLONGEE [Suspect]
     Indication: BACK PAIN
     Dosage: 20 MG AM + 30 MG PM, DAILY
     Route: 048
  2. OXYCONTIN LP 20 MG, COMPRIME PELLICULE A LIBERATION PROLONGEE [Suspect]
     Dosage: 15 MG AM + 10 MG PM, DAILY
     Route: 048
     Dates: start: 20130315
  3. OXYNORMORO COMPRIME ORODISPERSIBLE 5 MG [Suspect]
     Indication: BACK PAIN
     Dosage: 5 MG, QID
     Route: 048
  4. OXYNORMORO COMPRIME ORODISPERSIBLE 5 MG [Suspect]
     Dosage: 5 MG, BID
     Route: 048
     Dates: start: 20130315
  5. DOLIPRANE [Concomitant]
     Indication: BACK PAIN
     Dosage: 500 MG, TID
  6. LYRICA [Concomitant]
     Indication: BACK PAIN
     Dosage: 50 MG, UNK
  7. FORLAX                             /00754501/ [Concomitant]
     Dosage: 10 GRAM, UNK
     Route: 048
  8. EDUCTYL [Concomitant]
     Dosage: 1 DF, DAILY
  9. LANTUS [Concomitant]
     Indication: TYPE 1 DIABETES MELLITUS
     Dosage: 20 IU, DAILY
  10. HUMALOG [Concomitant]
     Indication: TYPE 1 DIABETES MELLITUS
     Dosage: 1 IU, BID
  11. BRONCHODUAL [Concomitant]
     Indication: CHRONIC OBSTRUCTIVE PULMONARY DISEASE
     Dosage: 2 DF, BID
  12. LASILIX                            /00032601/ [Concomitant]
     Indication: HYPERTENSION
     Dosage: 40 MG, AM
  13. CARDENSIEL [Concomitant]
     Indication: HYPERTENSION
     Dosage: 2.5 MG, AM
  14. LEVOTHYROX [Concomitant]
     Indication: HYPOTHYROIDISM
     Dosage: 100 MCG, UNK
  15. INEXIUM                            /01479302/ [Concomitant]
     Dosage: 1 DF, PM
  16. TARDYFERON [Concomitant]
     Dosage: 80 MCG, BID
  17. UVEDOSE [Concomitant]
  18. IMOVANE [Concomitant]
     Dosage: 7.5 MG, NOCTE

REACTIONS (7)
  - Lobar pneumonia [Recovered/Resolved]
  - PCO2 decreased [Recovered/Resolved]
  - Urinary retention [Recovered/Resolved]
  - Blood pressure decreased [Recovered/Resolved]
  - Sedation [Recovered/Resolved]
  - Constipation [Recovered/Resolved]
  - Dehydration [Recovered/Resolved]
